FAERS Safety Report 16531664 (Version 12)
Quarter: 2022Q4

REPORT INFORMATION
  Report Type: Spontaneous
  Country: AU (occurrence: AU)
  Receive Date: 20190704
  Receipt Date: 20221110
  Transmission Date: 20230113
  Serious: Yes (Death, Life-Threatening, Other)
  Sender: FDA-Public Use
  Company Number: AU-009507513-1906AUS011608

PATIENT
  Age: 21 Year
  Sex: Male
  Weight: 60 kg

DRUGS (9)
  1. BRIDION [Suspect]
     Active Substance: SUGAMMADEX
     Indication: Neuromuscular blockade reversal
     Dosage: 400 MILLIGRAM
     Dates: start: 20190526
  2. ROCURONIUM BROMIDE [Suspect]
     Active Substance: ROCURONIUM BROMIDE
     Indication: Muscle relaxant therapy
     Dosage: 70 MILLIGRAM
     Dates: start: 20190526
  3. PROPOFOL [Suspect]
     Active Substance: PROPOFOL
     Dosage: 200 MILLIGRAM
     Dates: start: 20190526
  4. MIDAZOLAM [Suspect]
     Active Substance: MIDAZOLAM
     Dosage: 2.5 MILLIGRAM
     Dates: start: 20190526
  5. FENTANYL [Suspect]
     Active Substance: FENTANYL
     Dosage: 100 MICROGRAM
     Dates: start: 20190526
  6. FENTANYL [Suspect]
     Active Substance: FENTANYL
     Dosage: FURTHER DOSE
     Dates: start: 20190526
  7. CEFAZOLIN SODIUM [Suspect]
     Active Substance: CEFAZOLIN SODIUM
     Dosage: UNK
     Dates: start: 20190526
  8. PARECOXIB [Suspect]
     Active Substance: PARECOXIB
     Dosage: UNK
     Dates: start: 20190526
  9. ONDANSETRON [Suspect]
     Active Substance: ONDANSETRON
     Dosage: UNK
     Dates: start: 20190526

REACTIONS (25)
  - Death [Fatal]
  - Brain death [Fatal]
  - Anaphylactic reaction [Unknown]
  - Aspiration [Unknown]
  - Brain injury [Unknown]
  - Cardiac arrest [Unknown]
  - Pulmonary oedema [Unknown]
  - Hypoxia [Unknown]
  - Hypokalaemia [Unknown]
  - Hyperkalaemia [Unknown]
  - Hypothermia [Unknown]
  - Cardiac tamponade [Unknown]
  - Pneumothorax [Unknown]
  - Pulmonary embolism [Unknown]
  - Negative pressure pulmonary oedema [Unknown]
  - Loss of consciousness [Unknown]
  - Endotracheal intubation [Unknown]
  - Endotracheal intubation complication [Unknown]
  - Cerebral hypoperfusion [Unknown]
  - Wheezing [Unknown]
  - Toxicity to various agents [Unknown]
  - Laryngospasm [Unknown]
  - Asthma [Unknown]
  - Hypovolaemia [Unknown]
  - Bronchospasm [Unknown]

NARRATIVE: CASE EVENT DATE: 20190101
